FAERS Safety Report 23628501 (Version 1)
Quarter: 2024Q1

REPORT INFORMATION
  Report Type: Spontaneous
  Country: US (occurrence: None)
  Receive Date: 20240313
  Receipt Date: 20240313
  Transmission Date: 20240410
  Serious: No
  Sender: FDA-Public Use
  Company Number: None

PATIENT
  Age: 7 Year
  Sex: Male

DRUGS (10)
  1. BUDESONIDE [Suspect]
     Active Substance: BUDESONIDE
  2. forecourt [Concomitant]
  3. levolin [Concomitant]
  4. ipropropium bromide [Concomitant]
  5. TIOTROPIUM BROMIDE [Concomitant]
     Active Substance: TIOTROPIUM BROMIDE
  6. PREDNISONE [Concomitant]
     Active Substance: PREDNISONE
  7. NASONEX [Concomitant]
     Active Substance: MOMETASONE FUROATE
  8. fomotidine [Concomitant]
  9. UNSPECIFIED INGREDIENT [Concomitant]
     Active Substance: UNSPECIFIED INGREDIENT
  10. Kids multivitamin (centrum) [Concomitant]

REACTIONS (3)
  - Wheezing [None]
  - Abnormal behaviour [None]
  - Mood altered [None]
